FAERS Safety Report 19025501 (Version 1)
Quarter: 2021Q1

REPORT INFORMATION
  Report Type: Report from Study
  Country: US (occurrence: US)
  Receive Date: 20210318
  Receipt Date: 20210318
  Transmission Date: 20210420
  Serious: Yes (Hospitalization, Other)
  Sender: FDA-Public Use
  Company Number: US-TAKEDA-2021TUS015771

PATIENT
  Sex: Female

DRUGS (4)
  1. TEDUGLUTIDE [Suspect]
     Active Substance: TEDUGLUTIDE
     Indication: SHORT-BOWEL SYNDROME
     Dosage: 5.5 MILLIGRAM, QD
     Route: 058
     Dates: start: 20200818
  2. TEDUGLUTIDE [Suspect]
     Active Substance: TEDUGLUTIDE
     Indication: SHORT-BOWEL SYNDROME
     Dosage: 5.5 MILLIGRAM, QD
     Route: 058
     Dates: start: 20200818
  3. TEDUGLUTIDE [Suspect]
     Active Substance: TEDUGLUTIDE
     Indication: SHORT-BOWEL SYNDROME
     Dosage: 5.5 MILLIGRAM, QD
     Route: 058
     Dates: start: 20200818
  4. TEDUGLUTIDE [Suspect]
     Active Substance: TEDUGLUTIDE
     Indication: SHORT-BOWEL SYNDROME
     Dosage: 5.5 MILLIGRAM, QD
     Route: 058
     Dates: start: 20200818

REACTIONS (4)
  - Small intestinal obstruction [Unknown]
  - Weight decreased [Unknown]
  - Dehydration [Unknown]
  - Enterocutaneous fistula [Unknown]
